FAERS Safety Report 5237498-5 (Version None)
Quarter: 2007Q1

REPORT INFORMATION
  Report Type: 
  Country: None (occurrence: None)
  Receive Date: 20070213
  Receipt Date: 20070208
  Transmission Date: 20070707
  Serious: Yes (Other)
  Sender: FDA-Public Use
  Company Number: US-PFIZER INC-2006140698

PATIENT
  Sex: Female
  Weight: 79.8 kg

DRUGS (6)
  1. XANAX [Suspect]
  2. GENOTROPIN [Suspect]
     Indication: PITUITARY TUMOUR REMOVAL
  3. TRICOR [Concomitant]
  4. METOPROLOL TARTRATE [Concomitant]
  5. ANTIHYPERTENSIVES [Concomitant]
  6. SYNTHROID [Concomitant]

REACTIONS (5)
  - DRUG WITHDRAWAL SYNDROME [None]
  - HYPERGLYCAEMIA [None]
  - NERVOUSNESS [None]
  - PITUITARY TUMOUR [None]
  - TREMOR [None]
